FAERS Safety Report 13446306 (Version 1)
Quarter: 2017Q2

REPORT INFORMATION
  Report Type: Spontaneous
  Country: US (occurrence: US)
  Receive Date: 20170417
  Receipt Date: 20170417
  Transmission Date: 20170830
  Serious: No
  Sender: FDA-Public Use
  Company Number: US-JNJFOC-20170407729

PATIENT
  Age: 11 Year
  Sex: Male

DRUGS (2)
  1. PEPCID [Suspect]
     Active Substance: FAMOTIDINE
     Route: 065
  2. PEPCID [Suspect]
     Active Substance: FAMOTIDINE
     Indication: GASTROOESOPHAGEAL REFLUX DISEASE
     Route: 065

REACTIONS (2)
  - Drug prescribing error [Unknown]
  - Wrong technique in product usage process [Unknown]
